FAERS Safety Report 12508686 (Version 2)
Quarter: 2016Q3

REPORT INFORMATION
  Report Type: Report from Study
  Country: CA (occurrence: CA)
  Receive Date: 20160629
  Receipt Date: 20160811
  Transmission Date: 20161109
  Serious: Yes (Other)
  Sender: FDA-Public Use
  Company Number: CA-BRISTOL-MYERS SQUIBB COMPANY-BMS-2016-022608

PATIENT
  Age: 44 Year
  Sex: Female

DRUGS (2)
  1. ABATACEPT [Suspect]
     Active Substance: ABATACEPT
     Indication: RHEUMATOID ARTHRITIS
     Dosage: 1000 MG, Q2WK
     Route: 042
     Dates: start: 20160322
  2. ABATACEPT [Suspect]
     Active Substance: ABATACEPT
     Dosage: 1000 MG, Q4WK
     Route: 042
     Dates: start: 20160322

REACTIONS (4)
  - Thrombosis [Unknown]
  - Infection [Unknown]
  - Nausea [Unknown]
  - Herpes zoster [Unknown]

NARRATIVE: CASE EVENT DATE: 20160322
